FAERS Safety Report 18081973 (Version 1)
Quarter: 2020Q3

REPORT INFORMATION
  Report Type: Spontaneous
  Country: US (occurrence: US)
  Receive Date: 20200729
  Receipt Date: 20200729
  Transmission Date: 20201103
  Serious: No
  Sender: FDA-Public Use
  Company Number: US-JNJFOC-20200732919

PATIENT
  Age: 74 Year
  Sex: Male
  Weight: 81.72 kg

DRUGS (1)
  1. MENS ROGAINE EXTRA STRENGTH [Suspect]
     Active Substance: MINOXIDIL
     Indication: PRODUCT USED FOR UNKNOWN INDICATION
     Dosage: THE MARK ON THE DROPPER.  PRODUCT LAST ADMINISTERED ON 16/JUL/2020.
     Route: 061
     Dates: start: 202006

REACTIONS (1)
  - Application site exfoliation [Recovering/Resolving]

NARRATIVE: CASE EVENT DATE: 202007
